FAERS Safety Report 17544155 (Version 1)
Quarter: 2020Q1

REPORT INFORMATION
  Report Type: Spontaneous
  Country: US (occurrence: US)
  Receive Date: 20200313
  Receipt Date: 20200313
  Transmission Date: 20200409
  Serious: Yes (Hospitalization)
  Sender: FDA-Public Use
  Company Number: None

PATIENT
  Age: 36 Year
  Sex: Female

DRUGS (7)
  1. LEVOTHYROXIN [Concomitant]
     Active Substance: LEVOTHYROXINE
  2. ENOXAPARIN 40MG/0.4ML SYR (10) [Suspect]
     Active Substance: ENOXAPARIN
     Indication: INFERTILITY FEMALE
     Route: 058
     Dates: start: 20191003
  3. ENOXAPARIN 40MG/0.4ML SYR (20) [Suspect]
     Active Substance: ENOXAPARIN
     Indication: INFERTILITY FEMALE
     Route: 058
     Dates: start: 20191003
  4. CLINDAMYCIN. [Concomitant]
     Active Substance: CLINDAMYCIN
  5. PROGESTERONE. [Concomitant]
     Active Substance: PROGESTERONE
  6. NIFEDIPINE. [Concomitant]
     Active Substance: NIFEDIPINE
  7. ONDANSETRON [Concomitant]
     Active Substance: ONDANSETRON

REACTIONS (1)
  - Injection site reaction [None]

NARRATIVE: CASE EVENT DATE: 20200228
